FAERS Safety Report 23573710 (Version 4)
Quarter: 2024Q3

REPORT INFORMATION
  Report Type: Report from Study
  Country: GB (occurrence: GB)
  Receive Date: 20240228
  Receipt Date: 20240821
  Transmission Date: 20241017
  Serious: Yes (Hospitalization, Other)
  Sender: TAKEDA
  Company Number: GB-TAKEDA-2024TUS017521

PATIENT
  Age: 66 Year
  Sex: Female

DRUGS (34)
  1. VELAGLUCERASE ALFA [Suspect]
     Active Substance: VELAGLUCERASE ALFA
     Indication: Gaucher^s disease
     Dosage: 23.86 INTERNATIONAL UNIT/KILOGRAM, Q2WEEKS
     Route: 065
     Dates: start: 20091112, end: 20110308
  2. VELAGLUCERASE ALFA [Suspect]
     Active Substance: VELAGLUCERASE ALFA
     Dosage: 29.48 INTERNATIONAL UNIT/KILOGRAM, Q2WEEKS
     Route: 065
     Dates: start: 20110308, end: 20110602
  3. VELAGLUCERASE ALFA [Suspect]
     Active Substance: VELAGLUCERASE ALFA
     Dosage: 57.14 INTERNATIONAL UNIT/KILOGRAM
     Route: 065
     Dates: start: 20110602, end: 201502
  4. VELAGLUCERASE ALFA [Suspect]
     Active Substance: VELAGLUCERASE ALFA
     Dosage: 45.7 INTERNATIONAL UNIT/KILOGRAM, Q2WEEKS
     Route: 065
     Dates: start: 201502
  5. COAL TAR [Concomitant]
     Active Substance: COAL TAR
     Indication: Psoriasis
     Route: 062
  6. CIMETIDINE [Concomitant]
     Active Substance: CIMETIDINE
     Indication: Gastric ulcer
     Dosage: UNK
     Route: 048
     Dates: end: 19991207
  7. NABUMETONE [Concomitant]
     Active Substance: NABUMETONE
     Indication: Pain
     Dosage: UNK UNK, TID
     Route: 048
     Dates: end: 19991207
  8. PROPOXYPHENE HYDROCHLORIDE [Concomitant]
     Active Substance: PROPOXYPHENE HYDROCHLORIDE
     Indication: Pain
     Route: 048
  9. FEMULEN [Concomitant]
     Indication: Contraception
     Dosage: UNK UNK, QD
     Route: 048
     Dates: end: 20030624
  10. BUPRENORPHINE [Concomitant]
     Active Substance: BUPRENORPHINE
     Indication: Analgesic therapy
     Route: 060
  11. CELECOXIB [Concomitant]
     Active Substance: CELECOXIB
     Indication: Pain
     Dosage: UNK UNK, QD
     Route: 048
  12. CO-DYDRAMOL [Concomitant]
     Active Substance: ACETAMINOPHEN\DIHYDROCODEINE
     Indication: Pain
     Route: 048
  13. TRAMADOL HYDROCHLORIDE [Concomitant]
     Active Substance: TRAMADOL HYDROCHLORIDE
     Indication: Pain
     Route: 048
  14. NAPROXEN SODIUM [Concomitant]
     Active Substance: NAPROXEN\NAPROXEN SODIUM
     Indication: Pain
     Route: 048
  15. OMEPRAZOLE [Concomitant]
     Active Substance: OMEPRAZOLE
     Indication: Gastritis
     Dosage: UNK UNK, QD
     Route: 048
  16. MELOXICAM [Concomitant]
     Active Substance: MELOXICAM
     Indication: Pain
     Dosage: UNK UNK, QD
     Route: 048
  17. TRANEXAMIC ACID [Concomitant]
     Active Substance: TRANEXAMIC ACID
     Indication: Pain
     Route: 048
  18. LORATADINE [Concomitant]
     Active Substance: LORATADINE
     Indication: Pruritus
     Dosage: UNK UNK, QD
     Route: 048
  19. ETANERCEPT [Concomitant]
     Active Substance: ETANERCEPT
     Indication: Psoriatic arthropathy
     Dosage: 50 MILLIGRAM, 1/WEEK
     Route: 058
  20. AMITRIPTYLINE [Concomitant]
     Active Substance: AMITRIPTYLINE
     Indication: Depression
     Dosage: UNK UNK, QD
     Route: 048
  21. ACETAMINOPHEN [Concomitant]
     Active Substance: ACETAMINOPHEN
     Indication: Pain
     Route: 048
  22. CARBOXYMETHYLCELLULOSE SODIUM [Concomitant]
     Active Substance: CARBOXYMETHYLCELLULOSE SODIUM
     Indication: Dry eye
     Dosage: UNK UNK, TID
     Route: 061
  23. AMOXICILLIN\CLAVULANIC ACID [Concomitant]
     Active Substance: AMOXICILLIN\CLAVULANIC ACID
     Indication: Infection
     Route: 048
  24. MORPHINE SULFATE [Concomitant]
     Active Substance: MORPHINE SULFATE
     Indication: Pain
     Route: 048
  25. FERROUS SULFATE [Concomitant]
     Active Substance: FERROUS SULFATE
     Indication: Iron deficiency
     Route: 048
  26. ALENDRONATE SODIUM [Concomitant]
     Active Substance: ALENDRONATE SODIUM
     Indication: Bone density decreased
     Dosage: UNK
     Route: 048
     Dates: start: 20140812
  27. CHOLECALCIFEROL [Concomitant]
     Active Substance: CHOLECALCIFEROL
     Indication: Calcium deficiency
     Dosage: 2 DOSAGE FORM, QD
     Route: 048
  28. SERTRALINE [Concomitant]
     Active Substance: SERTRALINE HYDROCHLORIDE
     Indication: Depression
     Dosage: 50 MILLIGRAM, QD
     Route: 048
  29. HYLO FORTE [Concomitant]
     Indication: Eye disorder
     Dosage: UNK
     Route: 061
  30. TRAMADOL [Concomitant]
     Active Substance: TRAMADOL\TRAMADOL HYDROCHLORIDE
     Indication: Pain
     Dosage: 50 MILLIGRAM, BID
  31. LANSOPRAZOLE [Concomitant]
     Active Substance: LANSOPRAZOLE
     Indication: Gastritis
     Dosage: UNK UNK, QD
     Route: 048
     Dates: start: 19991207
  32. ERGOCALCIFEROL [Concomitant]
     Active Substance: ERGOCALCIFEROL
     Indication: Supplementation therapy
     Dosage: UNK UNK, QD
     Route: 048
     Dates: start: 200608
  33. HYPERICUM PERFORATUM WHOLE [Concomitant]
     Active Substance: HYPERICUM PERFORATUM WHOLE
     Indication: Depression
     Dosage: UNK UNK, QD
     Route: 048
     Dates: start: 20090129
  34. CITALOPRAM [Concomitant]
     Active Substance: CITALOPRAM\CITALOPRAM HYDROBROMIDE
     Indication: Depression
     Dosage: UNK UNK, QD
     Route: 048
     Dates: start: 201003, end: 201101

REACTIONS (1)
  - Gallbladder rupture [Recovered/Resolved]

NARRATIVE: CASE EVENT DATE: 20240222
